FAERS Safety Report 24119256 (Version 1)
Quarter: 2024Q3

REPORT INFORMATION
  Report Type: Spontaneous
  Country: GB (occurrence: GB)
  Receive Date: 20240722
  Receipt Date: 20240722
  Transmission Date: 20241017
  Serious: Yes (Life-Threatening, Other)
  Sender: TORRENT
  Company Number: None

PATIENT
  Age: 73 Year
  Sex: Female

DRUGS (2)
  1. VENLAFAXINE [Interacting]
     Active Substance: VENLAFAXINE HYDROCHLORIDE
     Indication: Depression
     Dosage: 225MG DAILY (300MG XL DAILY)
     Route: 065
     Dates: start: 201907
  2. DATSCAN [Interacting]
     Active Substance: IODINE\IOFLUPANE I-123
     Indication: Parkinson^s disease
     Dosage: UNKNOWN
     Route: 065
     Dates: start: 202109, end: 202109

REACTIONS (4)
  - Drug interaction [Not Recovered/Not Resolved]
  - Malaise [Unknown]
  - Anxiety [Unknown]
  - Depression [Unknown]

NARRATIVE: CASE EVENT DATE: 20210901
